FAERS Safety Report 9300585 (Version 1)
Quarter: 2013Q2

REPORT INFORMATION
  Report Type: Spontaneous
  Country: US (occurrence: None)
  Receive Date: 20130520
  Receipt Date: 20130520
  Transmission Date: 20140414
  Serious: Yes (Death)
  Sender: FDA-Public Use
  Company Number: None

PATIENT
  Age: 60 Year
  Sex: Male
  Weight: 108.86 kg

DRUGS (2)
  1. ACTOS PIOGLITAZONE HCL 45MG [Suspect]
  2. METFORMIN HCL 500MG [Suspect]

REACTIONS (7)
  - Hepatic cancer [None]
  - Back pain [None]
  - Arthralgia [None]
  - General physical health deterioration [None]
  - Dyspnoea [None]
  - Local swelling [None]
  - Hyperhidrosis [None]
